FAERS Safety Report 4700690-X (Version None)
Quarter: 2005Q2

REPORT INFORMATION
  Report Type: 
  Country: None (occurrence: None)
  Receive Date: 20050627
  Receipt Date: 20050510
  Transmission Date: 20051028
  Serious: Yes (Life-Threatening, Hospitalization, Disabling)
  Sender: FDA-Public Use
  Company Number: DE-MERCK-0505DEU00063

PATIENT
  Age: 70 Year
  Sex: Male

DRUGS (13)
  1. VIOXX [Suspect]
     Indication: BACK PAIN
     Route: 048
     Dates: start: 20020101
  2. VIOXX [Suspect]
     Route: 048
     Dates: end: 20031101
  3. VIOXX [Suspect]
     Route: 048
     Dates: start: 20020430
  4. VIOXX [Suspect]
     Route: 048
     Dates: start: 20030904
  5. VIOXX [Suspect]
     Route: 048
     Dates: start: 20030813, end: 20030821
  6. VIOXX [Suspect]
     Route: 048
     Dates: end: 20040101
  7. VALDECOXIB [Suspect]
     Route: 048
     Dates: start: 20020101, end: 20030101
  8. CLOPIDOGREL BISULFATE [Concomitant]
     Route: 065
  9. MAGNESIUM (UNSPECIFIED) [Concomitant]
     Route: 065
  10. SPIRONOLACTONE [Concomitant]
     Route: 065
  11. SAW PALMETTO [Concomitant]
     Route: 065
  12. FOSINOPRIL SODIUM AND HYDROCHLOROTHIAZIDE [Concomitant]
     Route: 065
  13. MESALAMINE [Concomitant]
     Route: 065

REACTIONS (7)
  - CORONARY ARTERY DISEASE [None]
  - CORONARY ARTERY REOCCLUSION [None]
  - FATIGUE [None]
  - HEADACHE [None]
  - INTERVERTEBRAL DISC PROTRUSION [None]
  - LIGAMENT DISORDER [None]
  - MYOCARDIAL INFARCTION [None]
